FAERS Safety Report 10684888 (Version 1)
Quarter: 2014Q4

REPORT INFORMATION
  Report Type: Spontaneous
  Country: US (occurrence: US)
  Receive Date: 20141231
  Receipt Date: 20141231
  Transmission Date: 20150529
  Serious: No
  Sender: FDA-Public Use
  Company Number: US-SHIRE-US201409016

PATIENT
  Age: 50 Year
  Sex: Female
  Weight: 83.9 kg

DRUGS (2)
  1. VYVANSE [Suspect]
     Active Substance: LISDEXAMFETAMINE DIMESYLATE
     Indication: ATTENTION DEFICIT/HYPERACTIVITY DISORDER
     Dosage: 50 MG, PER DAY
     Route: 048
     Dates: start: 2008
  2. VYVANSE [Suspect]
     Active Substance: LISDEXAMFETAMINE DIMESYLATE
     Indication: NARCOLEPSY

REACTIONS (5)
  - Impulsive behaviour [Unknown]
  - Drug ineffective [Unknown]
  - Weight increased [Unknown]
  - Fatigue [Unknown]
  - Product quality issue [Unknown]
